FAERS Safety Report 8096928-4 (Version None)
Quarter: 2012Q1

REPORT INFORMATION
  Report Type: 
  Country: None (occurrence: None)
  Receive Date: 20120129
  Receipt Date: 20111104
  Transmission Date: 20120608
  Serious: No
  Sender: FDA-Public Use
  Company Number: US-ABBOTT-11P-163-0730607-00

PATIENT
  Weight: 86.26 kg

DRUGS (13)
  1. PROZAC [Concomitant]
     Indication: DEPRESSION
     Dosage: 20 MG/DAY
     Dates: start: 20010101
  2. MULTI-VITAMIN [Concomitant]
     Indication: VITAMIN SUPPLEMENTATION
  3. HUMIRA [Suspect]
     Indication: PSORIASIS
     Dates: start: 20090101
  4. PROZAC [Concomitant]
     Indication: DIVORCED
  5. ASCORBIC ACID [Concomitant]
     Indication: VITAMIN SUPPLEMENTATION
  6. LIPITOR [Concomitant]
     Indication: BLOOD CHOLESTEROL INCREASED
     Dosage: 20 MG/DAY
     Dates: start: 20010101
  7. CALCIUM [Concomitant]
     Indication: PRODUCT USED FOR UNKNOWN INDICATION
  8. WOMEN'S SPECIFIC VITAMIN FORMULA [Concomitant]
     Indication: VITAMIN SUPPLEMENTATION
  9. HUMIRA [Suspect]
     Indication: PSORIATIC ARTHROPATHY
     Dates: start: 20070101
  10. ASPIRIN [Concomitant]
     Indication: PRODUCT USED FOR UNKNOWN INDICATION
  11. ATENELOL [Concomitant]
     Indication: MITRAL VALVE PROLAPSE
     Dosage: 20 MG/DAY
     Dates: start: 20010101
  12. ATENELOL [Concomitant]
     Indication: ARRHYTHMIA
  13. ATENELOL [Concomitant]
     Indication: VENTRICULAR EXTRASYSTOLES

REACTIONS (9)
  - PAIN [None]
  - GAIT DISTURBANCE [None]
  - BACK PAIN [None]
  - ARTHRALGIA [None]
  - JOINT SWELLING [None]
  - PAIN IN EXTREMITY [None]
  - NECK PAIN [None]
  - ORGANISING PNEUMONIA [None]
  - WHITE BLOOD CELL COUNT DECREASED [None]
